FAERS Safety Report 6673320-8 (Version None)
Quarter: 2010Q1

REPORT INFORMATION
  Report Type: 
  Country: None (occurrence: None)
  Receive Date: 20100329
  Receipt Date: 20090819
  Transmission Date: 20100710
  Serious: Yes (Other)
  Sender: FDA-Public Use
  Company Number: 2009258829

PATIENT
  Age: 57 Year
  Sex: Male

DRUGS (2)
  1. GEODON [Suspect]
     Indication: BIPOLAR DISORDER
     Dosage: FREQUENCY: 2X/DAY,, ORAL
     Route: 048
     Dates: start: 20090701
  2. GEODON [Suspect]
     Indication: EMOTIONAL DISORDER
     Dosage: FREQUENCY: 2X/DAY,, ORAL
     Route: 048
     Dates: start: 20090701

REACTIONS (15)
  - ACTIVITIES OF DAILY LIVING IMPAIRED [None]
  - APHASIA [None]
  - CRYING [None]
  - DRUG DOSE OMISSION [None]
  - DYSSTASIA [None]
  - FATIGUE [None]
  - FEELING HOT [None]
  - HYPERHIDROSIS [None]
  - MALAISE [None]
  - NERVOUSNESS [None]
  - OCULAR HYPERAEMIA [None]
  - PARALYSIS [None]
  - PYREXIA [None]
  - SOMNOLENCE [None]
  - TREMOR [None]
